FAERS Safety Report 9761310 (Version 1)
Quarter: 2013Q4

REPORT INFORMATION
  Report Type: Spontaneous
  Country: CO (occurrence: None)
  Receive Date: 20131212
  Receipt Date: 20131212
  Transmission Date: 20140711
  Serious: Yes (Hospitalization, Disabling, Other)
  Sender: FDA-Public Use
  Company Number: DSU-2013-05300

PATIENT
  Age: 69 Year
  Sex: Male

DRUGS (11)
  1. OLMETEC HCT (HYDROCHLOROTHIAZIDE, OLMESARTAN MEDOXOMIL) (TABLET) (HYDROCHLOROTHIAZIDE, OLMESARTAN MEDOXOMIL) [Suspect]
     Indication: HYPERTENSION
     Dosage: 40/25 MG (ONE BENICAR 20/12.5MG BID)
     Route: 048
     Dates: start: 2012
  2. ACETYLSALICYLIC ACID (ACETYLSALICYLIC ACID) (ACETYLSALICYLIC ACID) [Concomitant]
  3. CILOSTAZOL (CILOSTAZOL) (CILOSTAZOL) [Concomitant]
  4. MINOXIDIL (MINOXIDIL) (MINOXIDIL) [Concomitant]
  5. CLOPIDOGREL (CLOPIDOGREL) (CLOPIDOGREL) [Concomitant]
  6. ATORVASTATIN (ATORVASTATIN) (ATORVASTATIN) [Concomitant]
  7. CARVEDILOL (CARVEDILOL) (CARVEDILOL) [Concomitant]
  8. THIOCTIC ACID (THIOCTIC ACID) (THIOCTIC ACID) [Concomitant]
  9. ENOXAPARIN (ENOXAPARIN) (ENOXAPARIN) [Concomitant]
  10. LEVODOPA-CARBODPA (LEVODOPA, CARBIDOPA) (LEVODOPA, CARBIDOPA) [Concomitant]
  11. MONIS (ISOSORBIDE MONONITRATE) (ISOSORBIDE MONONITRATE) [Concomitant]

REACTIONS (7)
  - Fall [None]
  - Cerebral haematoma [None]
  - Pneumonia [None]
  - Nausea [None]
  - Vomiting [None]
  - Dialysis [None]
  - Renal disorder [None]
